FAERS Safety Report 8179574-3 (Version None)
Quarter: 2012Q1

REPORT INFORMATION
  Report Type: 
  Country: None (occurrence: None)
  Receive Date: 20120229
  Receipt Date: 20120229
  Transmission Date: 20120608
  Serious: Yes (Hospitalization, Other)
  Sender: FDA-Public Use
  Company Number: None

PATIENT
  Sex: Female
  Weight: 42.1845 kg

DRUGS (8)
  1. ONDANSETRON HYDROCHLORIDE [Suspect]
     Indication: POST-TRAUMATIC STRESS DISORDER
     Dosage: 4XS DAILY 1 TAB
     Dates: start: 20090101, end: 20120101
  2. ONDANSETRON HYDROCHLORIDE [Suspect]
     Indication: NAUSEA
     Dosage: 4XS DAILY 1 TAB
     Dates: start: 20090101, end: 20120101
  3. ONDANSETRON HYDROCHLORIDE [Suspect]
     Indication: VOMITING
     Dosage: 4XS DAILY 1 TAB
     Dates: start: 20090101, end: 20120101
  4. ONDANSETRON HYDROCHLORIDE [Suspect]
     Indication: ANXIETY
     Dosage: 4XS DAILY 1 TAB
     Dates: start: 20090101, end: 20120101
  5. ONDANSETRON HYDROCHLORIDE [Suspect]
     Indication: POST-TRAUMATIC STRESS DISORDER
     Dosage: 4XS DAILY 1 TAB
     Dates: start: 20110601, end: 20120118
  6. ONDANSETRON HYDROCHLORIDE [Suspect]
     Indication: NAUSEA
     Dosage: 4XS DAILY 1 TAB
     Dates: start: 20110601, end: 20120118
  7. ONDANSETRON HYDROCHLORIDE [Suspect]
     Indication: VOMITING
     Dosage: 4XS DAILY 1 TAB
     Dates: start: 20110601, end: 20120118
  8. ONDANSETRON HYDROCHLORIDE [Suspect]
     Indication: ANXIETY
     Dosage: 4XS DAILY 1 TAB
     Dates: start: 20110601, end: 20120118

REACTIONS (8)
  - DIZZINESS [None]
  - MUSCLE TWITCHING [None]
  - VISION BLURRED [None]
  - DYSPNOEA [None]
  - AGITATION [None]
  - SYNCOPE [None]
  - ANXIETY [None]
  - CHILLS [None]
